FAERS Safety Report 10036450 (Version 1)
Quarter: 2014Q1

REPORT INFORMATION
  Report Type: Report from Study
  Country: DE (occurrence: DE)
  Receive Date: 20140326
  Receipt Date: 20140326
  Transmission Date: 20141002
  Serious: Yes (Other)
  Sender: FDA-Public Use
  Company Number: DE-ROCHE-1367400

PATIENT
  Age: 48 Year
  Sex: Female

DRUGS (4)
  1. BEVACIZUMAB [Suspect]
     Indication: OVARIAN CANCER
     Dosage: LAST DOSE PRIOR TO SAE:06/MAR/2014
     Route: 042
     Dates: start: 20140306
  2. GEMCITABINE [Suspect]
     Indication: OVARIAN CANCER
     Dosage: LAST DOSE PRIOR TO SAE:06/MAR/2014
     Route: 042
     Dates: start: 20140306, end: 20140313
  3. CARBOPLATIN [Suspect]
     Indication: OVARIAN CANCER
     Route: 042
     Dates: start: 20140306
  4. ESTRADIOL [Concomitant]
     Indication: PAIN
     Dosage: GEL
     Route: 062
     Dates: start: 20121115

REACTIONS (1)
  - Liver function test abnormal [Recovering/Resolving]
